FAERS Safety Report 6847686-X (Version None)
Quarter: 2010Q3

REPORT INFORMATION
  Report Type: 
  Country: None (occurrence: None)
  Receive Date: 20100716
  Receipt Date: 20100706
  Transmission Date: 20110219
  Serious: Yes (Other)
  Sender: FDA-Public Use
  Company Number: PHHY2010US44826

PATIENT
  Sex: Female

DRUGS (10)
  1. FANAPT [Suspect]
     Dosage: 6 MG, UNK
     Route: 048
     Dates: start: 20100616
  2. COGENTIN [Concomitant]
     Dosage: 1 MG TWICE DAILY
  3. CYMBALTA [Concomitant]
     Dosage: 60 MG IN THE MORNING
  4. LAMICTAL [Concomitant]
     Dosage: 200 MG TWICE DAILY
  5. PRILOSEC [Concomitant]
     Dosage: 20 MG TWICE A DAY
  6. SYNTHROID [Concomitant]
     Dosage: 125 UCG IN THE MORNING
  7. TEMAZEPAM [Concomitant]
     Dosage: 30 MG AT NIGHT
  8. VERAMYST [Concomitant]
     Dosage: IN THE NORNING
  9. TRAZODONE HYDROCHLORIDE [Concomitant]
     Dosage: 300 MG
  10. VISTARIL [Concomitant]
     Dosage: 50 MG

REACTIONS (14)
  - AMNESTIC DISORDER [None]
  - ASTHENIA [None]
  - BLOOD PRESSURE ABNORMAL [None]
  - COMMUNICATION DISORDER [None]
  - CONFUSIONAL STATE [None]
  - DECREASED APPETITE [None]
  - DISTURBANCE IN ATTENTION [None]
  - GAIT DISTURBANCE [None]
  - INSOMNIA [None]
  - MUSCLE RIGIDITY [None]
  - MUSCULAR WEAKNESS [None]
  - NEUROLEPTIC MALIGNANT SYNDROME [None]
  - PSYCHOMOTOR HYPERACTIVITY [None]
  - SCHIZOAFFECTIVE DISORDER [None]
